FAERS Safety Report 6103156-8 (Version None)
Quarter: 2009Q1

REPORT INFORMATION
  Report Type: 
  Country: None (occurrence: None)
  Receive Date: 20090305
  Receipt Date: 20090220
  Transmission Date: 20090719
  Serious: Yes (Other)
  Sender: FDA-Public Use
  Company Number: JP-PFIZER INC-2009162808

PATIENT

DRUGS (1)
  1. AZULFIDINE [Suspect]
     Route: 050

REACTIONS (1)
  - ABORTION [None]
